FAERS Safety Report 16263352 (Version 2)
Quarter: 2019Q2

REPORT INFORMATION
  Report Type: Report from Study
  Country: None (occurrence: AU)
  Receive Date: 20190502
  Receipt Date: 20190531
  Transmission Date: 20190711
  Serious: Yes (Hospitalization)
  Sender: FDA-Public Use
  Company Number: AU-ABBVIE-19S-008-2761092-00

PATIENT
  Sex: Male

DRUGS (1)
  1. DUODOPA [Suspect]
     Active Substance: CARBIDOPA\LEVODOPA
     Indication: PARKINSON^S DISEASE
     Dosage: 100ML GEL CASSETTE?16 HOUR INFUSION
     Route: 050
     Dates: start: 20170518

REACTIONS (3)
  - Suicidal ideation [Recovering/Resolving]
  - Device dislocation [Unknown]
  - Loss of personal independence in daily activities [Recovering/Resolving]
